FAERS Safety Report 5447904-9 (Version None)
Quarter: 2007Q3

REPORT INFORMATION
  Report Type: 
  Country: None (occurrence: None)
  Receive Date: 20070910
  Receipt Date: 20070829
  Transmission Date: 20080115
  Serious: Yes (Hospitalization)
  Sender: FDA-Public Use
  Company Number: GB-PFIZER INC-2007072868

PATIENT
  Age: 50 Year
  Sex: Female
  Weight: 108 kg

DRUGS (5)
  1. CHAMPIX [Suspect]
     Indication: SMOKING CESSATION THERAPY
     Route: 048
     Dates: start: 20070704, end: 20070711
  2. CLARITHROMYCIN [Concomitant]
     Route: 048
     Dates: start: 20070621, end: 20070628
  3. PARACETAMOL [Concomitant]
     Route: 048
  4. PETHIDINE [Concomitant]
     Route: 048
  5. PREDNISOLONE [Concomitant]
     Route: 048
     Dates: start: 20070621, end: 20070626

REACTIONS (6)
  - ABDOMINAL DISTENSION [None]
  - ABDOMINAL PAIN UPPER [None]
  - AMNESIA [None]
  - DISORIENTATION [None]
  - FEELING ABNORMAL [None]
  - SOMNOLENCE [None]
